FAERS Safety Report 14541956 (Version 1)
Quarter: 2018Q1

REPORT INFORMATION
  Report Type: Spontaneous
  Country: US (occurrence: US)
  Receive Date: 20180216
  Receipt Date: 20180216
  Transmission Date: 20180509
  Serious: Yes (Other)
  Sender: FDA-Public Use
  Company Number: US-OTSUKA-DJ20121363

PATIENT

DRUGS (2)
  1. ABILIFY [Suspect]
     Active Substance: ARIPIPRAZOLE
     Indication: ANGER
  2. ABILIFY [Suspect]
     Active Substance: ARIPIPRAZOLE
     Indication: AFFECTIVE DISORDER
     Route: 065

REACTIONS (5)
  - Conduction disorder [Unknown]
  - Electrocardiogram repolarisation abnormality [Unknown]
  - Electrocardiogram ST segment elevation [Unknown]
  - Blood creatine phosphokinase increased [Not Recovered/Not Resolved]
  - Akathisia [Unknown]
